FAERS Safety Report 9873345 (Version 3)
Quarter: 2014Q2

REPORT INFORMATION
  Report Type: Report from Study
  Country: CH (occurrence: CH)
  Receive Date: 20140206
  Receipt Date: 20140523
  Transmission Date: 20141212
  Serious: Yes (Death)
  Sender: FDA-Public Use
  Company Number: CH-ROCHE-1340188

PATIENT
  Age: 69 Year
  Sex: Male

DRUGS (2)
  1. BEVACIZUMAB [Suspect]
     Indication: BRAIN NEOPLASM MALIGNANT
     Dosage: DATE OF LAST DOSE PRIOR TO SAE 20/JAN/2014
     Route: 042
     Dates: start: 20131125, end: 20140120
  2. FORTECORTIN [Concomitant]
     Indication: BRAIN OEDEMA
     Route: 065
     Dates: start: 20140106

REACTIONS (1)
  - Disability [Fatal]
